FAERS Safety Report 4925254-4 (Version None)
Quarter: 2006Q1

REPORT INFORMATION
  Report Type: 
  Country: None (occurrence: None)
  Receive Date: 20060223
  Receipt Date: 20060223
  Transmission Date: 20060701
  Serious: Yes (Hospitalization, Other)
  Sender: FDA-Public Use
  Company Number: None

PATIENT
  Sex: Female
  Weight: 83.9 kg

DRUGS (2)
  1. IRINOTECAN HCL [Suspect]
     Indication: GLIOBLASTOMA MULTIFORME
     Dosage: 736 MG
     Dates: start: 20050808, end: 20060109
  2. TEMOZOLOMIDE [Suspect]
     Dosage: 1350 MG
     Dates: start: 20050808, end: 20051231

REACTIONS (7)
  - CENTRAL NERVOUS SYSTEM INFECTION [None]
  - CONVULSION [None]
  - GLIOBLASTOMA MULTIFORME [None]
  - PYREXIA [None]
  - RECURRENT CANCER [None]
  - SEPSIS [None]
  - STAPHYLOCOCCAL INFECTION [None]
